FAERS Safety Report 9055407 (Version 1)
Quarter: 2013Q1

REPORT INFORMATION
  Report Type: Spontaneous
  Country: US (occurrence: US)
  Receive Date: 20130206
  Receipt Date: 20130206
  Transmission Date: 20140127
  Serious: Yes (Hospitalization)
  Sender: FDA-Public Use
  Company Number: US-BAYER-2013-014959

PATIENT
  Age: 33 Year
  Sex: Female
  Weight: 77.1 kg

DRUGS (4)
  1. YASMIN [Suspect]
  2. OCELLA [Suspect]
  3. BEYAZ [Suspect]
  4. IMITREX [Concomitant]
     Indication: MIGRAINE

REACTIONS (2)
  - Pulmonary embolism [None]
  - Contraindication to medical treatment [None]
